FAERS Safety Report 6774717-8 (Version None)
Quarter: 2010Q2

REPORT INFORMATION
  Report Type: 
  Country: None (occurrence: None)
  Receive Date: 20100617
  Receipt Date: 20100608
  Transmission Date: 20101027
  Serious: Yes (Hospitalization)
  Sender: FDA-Public Use
  Company Number: ES-ROCHE-709159

PATIENT
  Age: 11 Year
  Sex: Male

DRUGS (2)
  1. NAPROXEN [Suspect]
     Indication: ARTHRITIS
     Dosage: THERAPY FOR 8 WEEKS
     Route: 048
  2. SULFASALAZINE [Suspect]
     Indication: ARTHRITIS
     Dosage: THERAPY 4 WEEKS
     Route: 048

REACTIONS (13)
  - COAGULOPATHY [None]
  - DRUG RASH WITH EOSINOPHILIA AND SYSTEMIC SYMPTOMS [None]
  - EOSINOPHIL COUNT INCREASED [None]
  - FACE OEDEMA [None]
  - HEPATITIS ACUTE [None]
  - HEPATOSPLENOMEGALY [None]
  - HYPONATRAEMIA [None]
  - JAUNDICE [None]
  - LYMPHADENOPATHY [None]
  - PYREXIA [None]
  - RASH MACULO-PAPULAR [None]
  - RENAL TUBULAR DISORDER [None]
  - VOMITING [None]
